FAERS Safety Report 5035552-4 (Version None)
Quarter: 2006Q2

REPORT INFORMATION
  Report Type: 
  Country: None (occurrence: None)
  Receive Date: 20060526
  Receipt Date: 20060215
  Transmission Date: 20061013
  Serious: No
  Sender: FDA-Public Use
  Company Number: FABR-10994

PATIENT
  Age: 29 Year
  Sex: Male

DRUGS (4)
  1. FABRAZYME [Suspect]
     Indication: FABRY'S DISEASE
     Dosage: 35 MG IV
     Route: 042
     Dates: end: 20050101
  2. FABRAZYME [Suspect]
     Indication: FABRY'S DISEASE
     Dosage: 70 MG IV
     Route: 042
     Dates: start: 20030101
  3. ANTIHISTAMINES [Concomitant]
  4. HYDROCORTISONE TAB [Concomitant]

REACTIONS (5)
  - ANGIOKERATOMA [None]
  - FATIGUE [None]
  - MONARTHRITIS [None]
  - MUSCULOSKELETAL PAIN [None]
  - PYREXIA [None]
